FAERS Safety Report 8552419-5 (Version None)
Quarter: 2012Q3

REPORT INFORMATION
  Report Type: 
  Country: None (occurrence: None)
  Receive Date: 20120731
  Receipt Date: 20120717
  Transmission Date: 20120928
  Serious: Yes (Other)
  Sender: FDA-Public Use
  Company Number: US-VERTEX PHARMACEUTICALS INC.-AE-2012-010989

PATIENT

DRUGS (3)
  1. PEGASYS [Concomitant]
     Indication: HEPATITIS C
  2. RIBAVIRIN [Concomitant]
     Indication: HEPATITIS C
  3. INCIVEK [Suspect]
     Indication: HEPATITIS C

REACTIONS (8)
  - FATIGUE [None]
  - NAUSEA [None]
  - SYNCOPE [None]
  - ABDOMINAL DISCOMFORT [None]
  - DEPRESSION [None]
  - ARTHRALGIA [None]
  - DIARRHOEA [None]
  - VOMITING [None]
